FAERS Safety Report 9542838 (Version 1)
Quarter: 2013Q3

REPORT INFORMATION
  Report Type: Spontaneous
  Country: US (occurrence: US)
  Receive Date: 20130923
  Receipt Date: 20130923
  Transmission Date: 20140515
  Serious: No
  Sender: FDA-Public Use
  Company Number: US-PFIZER INC-2013272029

PATIENT
  Age: 23 Year
  Sex: Female
  Weight: 72.56 kg

DRUGS (4)
  1. LYRICA [Suspect]
     Indication: FIBROMYALGIA
     Dosage: 150 MG, 3X/DAY
     Route: 048
     Dates: start: 2006, end: 201309
  2. LYRICA [Suspect]
     Dosage: 150 MG, 2X/DAY
     Route: 048
     Dates: start: 201309, end: 201309
  3. LYRICA [Suspect]
     Dosage: 150 MG, 1X/DAY
     Route: 048
     Dates: start: 201309, end: 20130918
  4. ELAVIL [Concomitant]
     Indication: DEPRESSION
     Dosage: UNK

REACTIONS (2)
  - Intentional drug misuse [Unknown]
  - Pain [Not Recovered/Not Resolved]
